FAERS Safety Report 8796411 (Version 1)
Quarter: 2012Q4

REPORT INFORMATION
  Report Type: 
  Country: US (occurrence: US)
  Receive Date: 20120919
  Receipt Date: 20120919
  Transmission Date: 20130627
  Serious: Yes (Hospitalization)
  Sender: FDA-Public Use
  Company Number: US-WATSON-2012-15578

PATIENT
  Age: 62 Year
  Sex: Male
  Weight: 93 kg

DRUGS (1)
  1. TESTOSTERONE CYPIONATE (WATSON LABORATORIES) [Suspect]
     Indication: BLOOD TESTOSTERONE DECREASED
     Dosage: .5cc every 2 weeks
     Route: 030
     Dates: start: 201208

REACTIONS (1)
  - Myocardial infarction [Recovered/Resolved]
